FAERS Safety Report 4459779-5 (Version None)
Quarter: 2004Q3

REPORT INFORMATION
  Report Type: 
  Country: None (occurrence: None)
  Receive Date: 20040928
  Receipt Date: 20040513
  Transmission Date: 20050211
  Serious: No
  Sender: FDA-Public Use
  Company Number: US-BRISTOL-MYERS SQUIBB COMPANY-12586590

PATIENT
  Age: 76 Year
  Sex: Female
  Weight: 54 kg

DRUGS (2)
  1. KENALOG-40 [Suspect]
     Dosage: IN BUTTOCKS
     Route: 030
     Dates: start: 20031101, end: 20031103
  2. NEXIUM [Concomitant]

REACTIONS (1)
  - VASCULAR RUPTURE [None]
